FAERS Safety Report 10685309 (Version 1)
Quarter: 2014Q4

REPORT INFORMATION
  Report Type: Spontaneous
  Country: FR (occurrence: FR)
  Receive Date: 20141231
  Receipt Date: 20141231
  Transmission Date: 20150529
  Serious: Yes (Death)
  Sender: FDA-Public Use
  Company Number: FR-SA-2014SA178183

PATIENT
  Age: 40 Year
  Sex: Female

DRUGS (5)
  1. LOXAPAC [Concomitant]
     Active Substance: LOXAPINE SUCCINATE
  2. TERCIAN [Concomitant]
     Active Substance: CYAMEMAZINE
  3. LOVENOX [Suspect]
     Active Substance: ENOXAPARIN SODIUM
     Dosage: DAILY DOSE : 4000;UNITS : UNSPECIFIED
     Route: 058
     Dates: start: 20141114
  4. DIFFU K [Concomitant]
     Active Substance: POTASSIUM CHLORIDE
  5. VALIUM [Concomitant]
     Active Substance: DIAZEPAM

REACTIONS (2)
  - Drug ineffective [Fatal]
  - Pulmonary embolism [Fatal]

NARRATIVE: CASE EVENT DATE: 20141117
